FAERS Safety Report 6883390-X (Version None)
Quarter: 2010Q3

REPORT INFORMATION
  Report Type: 
  Country: None (occurrence: None)
  Receive Date: 20100727
  Receipt Date: 20080527
  Transmission Date: 20110219
  Serious: Yes (Hospitalization, Other)
  Sender: FDA-Public Use
  Company Number: US-PFIZER INC-2006106893

PATIENT
  Sex: Female
  Weight: 80.7 kg

DRUGS (2)
  1. CELEBREX [Suspect]
     Indication: ARTHROPATHY
  2. BEXTRA [Suspect]
     Indication: ARTHROPATHY

REACTIONS (3)
  - MENTAL DISORDER [None]
  - MYOCARDIAL INFARCTION [None]
  - ROTATOR CUFF SYNDROME [None]
